FAERS Safety Report 6849720-X (Version None)
Quarter: 2010Q3

REPORT INFORMATION
  Report Type: 
  Country: None (occurrence: None)
  Receive Date: 20100716
  Receipt Date: 20071004
  Transmission Date: 20110219
  Serious: No
  Sender: FDA-Public Use
  Company Number: US-PFIZER INC-2007084229

PATIENT
  Sex: Female
  Weight: 65.8 kg

DRUGS (3)
  1. CHANTIX [Suspect]
     Indication: SMOKING CESSATION THERAPY
     Dates: start: 20070801
  2. ANTIBIOTICS [Suspect]
     Indication: SINUSITIS
     Dates: end: 20070801
  3. MULTI-VITAMINS [Concomitant]

REACTIONS (3)
  - DRUG EFFECT DECREASED [None]
  - LOW DENSITY LIPOPROTEIN INCREASED [None]
  - RASH [None]
